FAERS Safety Report 20851250 (Version 1)
Quarter: 2022Q2

REPORT INFORMATION
  Report Type: Report from Study
  Country: US (occurrence: US)
  Receive Date: 20220519
  Receipt Date: 20220519
  Transmission Date: 20220721
  Serious: Yes (Death, Life-Threatening, Hospitalization, Other)
  Sender: FDA-Public Use
  Company Number: US-MSD-1207USA011405

PATIENT
  Age: 67 Year
  Sex: Male
  Weight: 89 kg

DRUGS (14)
  1. ZETIA [Suspect]
     Active Substance: EZETIMIBE
     Indication: Hyperlipidaemia
     Dosage: 10 MG, QD
     Route: 048
     Dates: end: 20111105
  2. ZOCOR [Suspect]
     Active Substance: SIMVASTATIN
     Indication: Hyperlipidaemia
     Dosage: 40 MG, QD
     Route: 048
     Dates: end: 20111105
  3. CRIZOTINIB [Suspect]
     Active Substance: CRIZOTINIB
     Indication: Non-small cell lung cancer
     Dosage: 250 MG, 2XDAY
     Route: 048
     Dates: start: 20110603, end: 20111024
  4. LEVOTHYROXINE SODIUM [Suspect]
     Active Substance: LEVOTHYROXINE SODIUM
     Indication: Hypothyroidism
     Dosage: 50 MICROGRAM, QD
     Route: 048
     Dates: end: 20111105
  5. BENZONATATE [Suspect]
     Active Substance: BENZONATATE
     Indication: Cough
     Dosage: 100 MILLIGRAM, AS NEEDED
     Route: 048
     Dates: end: 20111105
  6. VANCOMYCIN HYDROCHLORIDE [Suspect]
     Active Substance: VANCOMYCIN HYDROCHLORIDE
     Dosage: 1750 MG, ONCE
     Route: 042
     Dates: start: 20111015, end: 20111015
  7. VANCOMYCIN HYDROCHLORIDE [Suspect]
     Active Substance: VANCOMYCIN HYDROCHLORIDE
     Dosage: 1500 MILLIGRAM, BID
     Route: 042
     Dates: start: 20111015, end: 20111016
  8. MEROPENEM [Suspect]
     Active Substance: MEROPENEM
     Dosage: 1 GRAM IN 50 ML NS EVERY 8 HOURS
     Route: 042
     Dates: start: 20111015, end: 20111019
  9. LEVOFLOXACIN [Suspect]
     Active Substance: LEVOFLOXACIN
     Dosage: 750MG/D5W 150 ML Q24H
     Route: 042
     Dates: start: 20111015, end: 20111018
  10. ASPIRIN [Suspect]
     Active Substance: ASPIRIN
     Indication: Coronary artery disease
     Dosage: 80 MG, QD
     Route: 048
     Dates: end: 20111105
  11. POTASSIUM CHLORIDE [Suspect]
     Active Substance: POTASSIUM CHLORIDE
     Indication: Nutritional supplementation
     Dosage: 20 MEQ, QD
     Route: 048
     Dates: end: 20111105
  12. COREG [Suspect]
     Active Substance: CARVEDILOL
     Indication: Hypertension
     Dosage: 3.125 MG, QD
     Route: 048
     Dates: end: 20111010
  13. LASIX [Suspect]
     Active Substance: FUROSEMIDE
     Indication: Hypertension
     Dosage: UNK
     Route: 048
     Dates: start: 20111025, end: 20111105
  14. INFLUENZA VIRUS VACCINE [Suspect]
     Active Substance: INFLUENZA VIRUS VACCINE
     Indication: Prophylaxis
     Dosage: 1 DOSAGE FORM
     Route: 058
     Dates: start: 20111005, end: 20111005

REACTIONS (5)
  - Non-small cell lung cancer [Fatal]
  - Failure to thrive [Unknown]
  - Orthostatic hypotension [Recovering/Resolving]
  - Ileus [Recovering/Resolving]
  - Constipation [Recovering/Resolving]

NARRATIVE: CASE EVENT DATE: 20111012
